FAERS Safety Report 11285889 (Version 1)
Quarter: 2015Q3

REPORT INFORMATION
  Report Type: Report from Study
  Country: CA (occurrence: CA)
  Receive Date: 20150721
  Receipt Date: 20150721
  Transmission Date: 20151125
  Serious: Yes (Hospitalization)
  Sender: FDA-Public Use
  Company Number: CA-AMGEN-CANSL2015013207

PATIENT
  Age: 76 Year
  Sex: Female

DRUGS (2)
  1. VITAMIN D                          /00107901/ [Concomitant]
     Active Substance: ERGOCALCIFEROL
     Dosage: UNK
  2. PROLIA [Suspect]
     Active Substance: DENOSUMAB
     Indication: OSTEOPOROSIS POSTMENOPAUSAL
     Dosage: 60 MG, UNK
     Route: 058
     Dates: start: 20141120

REACTIONS (8)
  - Pneumothorax [Unknown]
  - Weight decreased [Recovering/Resolving]
  - Malaise [Unknown]
  - Dyspepsia [Unknown]
  - Dysphagia [Unknown]
  - Gastritis [Not Recovered/Not Resolved]
  - Heart rate decreased [Unknown]
  - Pancreatic cyst [Not Recovered/Not Resolved]

NARRATIVE: CASE EVENT DATE: 201501
